FAERS Safety Report 18731742 (Version 2)
Quarter: 2021Q1

REPORT INFORMATION
  Report Type: Other
  Country: AU (occurrence: AU)
  Receive Date: 20210112
  Receipt Date: 20210218
  Transmission Date: 20210419
  Serious: Yes (Other)
  Sender: FDA-Public Use
  Company Number: AU-ASTELLAS-2021US001041

PATIENT
  Age: 45 Year
  Sex: Female

DRUGS (13)
  1. PREDNISONE. [Suspect]
     Active Substance: PREDNISONE
     Indication: PRODUCT USED FOR UNKNOWN INDICATION
     Dosage: UNK UNK, UNKNOWN FREQ.
     Route: 065
  2. RITUXIMAB. [Suspect]
     Active Substance: RITUXIMAB
     Indication: CHRONIC GRAFT VERSUS HOST DISEASE
     Dosage: UNK UNK, UNKNOWN FREQ.
     Route: 065
  3. AZITHROMYCIN ANHYDROUS. [Suspect]
     Active Substance: AZITHROMYCIN ANHYDROUS
     Indication: CHRONIC GRAFT VERSUS HOST DISEASE
     Dosage: UNK UNK, UNKNOWN FREQ.
     Route: 065
  4. ETANERCEPT [Suspect]
     Active Substance: ETANERCEPT
     Indication: CHRONIC GRAFT VERSUS HOST DISEASE
     Dosage: UNK UNK, UNKNOWN FREQ.
     Route: 065
  5. ERELZI [Suspect]
     Active Substance: ETANERCEPT-SZZS
     Indication: CHRONIC GRAFT VERSUS HOST DISEASE
     Dosage: UNK UNK, UNKNOWN FREQ.
     Route: 065
  6. MYCOPHENOLATE MOFETIL. [Suspect]
     Active Substance: MYCOPHENOLATE MOFETIL
     Indication: CHRONIC GRAFT VERSUS HOST DISEASE
     Dosage: UNK UNK, UNKNOWN FREQ.
     Route: 065
  7. MYCOPHENOLATE MOFETIL. [Suspect]
     Active Substance: MYCOPHENOLATE MOFETIL
     Indication: SCLERODERMA
  8. AZITHROMYCIN ANHYDROUS. [Suspect]
     Active Substance: AZITHROMYCIN ANHYDROUS
     Indication: SCLERODERMA
  9. TACROLIMUS. [Suspect]
     Active Substance: TACROLIMUS
     Indication: CHRONIC GRAFT VERSUS HOST DISEASE
     Dosage: UNK UNK, UNKNOWN FREQ.
     Route: 065
  10. CICLOSPORIN [Suspect]
     Active Substance: CYCLOSPORINE
     Indication: CHRONIC GRAFT VERSUS HOST DISEASE
     Dosage: UNK UNK, UNKNOWN FREQ.
     Route: 065
  11. METHOTREXATE. [Suspect]
     Active Substance: METHOTREXATE
     Indication: CHRONIC GRAFT VERSUS HOST DISEASE
     Dosage: UNK UNK, UNKNOWN FREQ.
     Route: 065
  12. METHYLPREDNISOLONE. [Suspect]
     Active Substance: METHYLPREDNISOLONE
     Indication: CHRONIC GRAFT VERSUS HOST DISEASE
     Dosage: UNK UNK, UNKNOWN FREQ.
     Route: 065
  13. DEXAMETHASONE. [Suspect]
     Active Substance: DEXAMETHASONE
     Indication: CHRONIC GRAFT VERSUS HOST DISEASE
     Dosage: UNK UNK, UNKNOWN FREQ.
     Route: 065

REACTIONS (6)
  - Acute myeloid leukaemia [Unknown]
  - Neutropenic sepsis [Unknown]
  - Graft versus host disease [Unknown]
  - Mucosal inflammation [Unknown]
  - Acute myeloid leukaemia (in remission) [Unknown]
  - Scleroderma [Unknown]

NARRATIVE: CASE EVENT DATE: 201605
